FAERS Safety Report 9587218 (Version 2)
Quarter: 2013Q4

REPORT INFORMATION
  Report Type: Spontaneous
  Country: JP (occurrence: JP)
  Receive Date: 20131003
  Receipt Date: 20131029
  Transmission Date: 20140711
  Serious: Yes (Hospitalization)
  Sender: FDA-Public Use
  Company Number: JP-GLAXOSMITHKLINE-B0926585A

PATIENT
  Age: 81 Year
  Sex: Male
  Weight: 54 kg

DRUGS (13)
  1. VALTREX [Suspect]
     Indication: HERPES ZOSTER
     Dosage: 1000MG THREE TIMES PER DAY
     Route: 048
     Dates: start: 20130911, end: 20130924
  2. DEXAMETHASONE [Concomitant]
     Route: 048
  3. CELECOX [Concomitant]
     Dosage: 100MG TWICE PER DAY
     Route: 048
  4. OXYCONTIN [Concomitant]
     Dosage: 10MG TWICE PER DAY
     Route: 048
  5. TAKEPRON [Concomitant]
     Dosage: 15MG PER DAY
     Route: 048
  6. HEAVY MAGNESIUM OXIDE [Concomitant]
     Dosage: .67G THREE TIMES PER DAY
     Route: 048
  7. PANTOSIN [Concomitant]
     Dosage: .67G THREE TIMES PER DAY
     Route: 048
  8. DOGMATYL [Concomitant]
     Dosage: 50MG TWICE PER DAY
     Route: 048
  9. ARASENA-A [Concomitant]
     Indication: ECZEMA
     Route: 061
  10. LYRICA [Concomitant]
     Dosage: 75MG TWICE PER DAY
     Route: 048
  11. ANPEC [Concomitant]
     Indication: PAIN
     Route: 054
  12. VELCADE [Concomitant]
     Indication: PLASMA CELL MYELOMA
     Route: 058
  13. ZOMETA [Concomitant]
     Dosage: 4MG PER DAY
     Route: 042
     Dates: start: 20130918, end: 20130918

REACTIONS (8)
  - Depressed level of consciousness [Recovering/Resolving]
  - Coma [Recovered/Resolved]
  - Blister [Unknown]
  - Pyrexia [Unknown]
  - Dyskinesia [Unknown]
  - Musculoskeletal stiffness [Unknown]
  - Toxicity to various agents [Unknown]
  - Altered state of consciousness [Unknown]
